FAERS Safety Report 21519130 (Version 1)
Quarter: 2022Q4

REPORT INFORMATION
  Report Type: Spontaneous
  Country: US (occurrence: US)
  Receive Date: 20221028
  Receipt Date: 20221028
  Transmission Date: 20230113
  Serious: No
  Sender: FDA-Public Use
  Company Number: ALC2022US004185

PATIENT
  Age: 75 Year
  Sex: Female
  Weight: 55.782 kg

DRUGS (8)
  1. INVELTYS [Suspect]
     Active Substance: LOTEPREDNOL ETABONATE
     Indication: Cataract operation
     Dosage: 1 DROP, 2 OR 3X/DAY; IN THE FIRST EYE
     Route: 047
     Dates: start: 202112, end: 202201
  2. INVELTYS [Suspect]
     Active Substance: LOTEPREDNOL ETABONATE
     Dosage: 1 DROP, 2 OR 3X/DAY; IN THE FIRST EYE
     Route: 047
     Dates: start: 202112, end: 202201
  3. INVELTYS [Suspect]
     Active Substance: LOTEPREDNOL ETABONATE
     Dosage: 1 DROP, 2 OR 3X/DAY; IN THE SECOND EYE
     Route: 047
     Dates: start: 202201, end: 202201
  4. INVELTYS [Suspect]
     Active Substance: LOTEPREDNOL ETABONATE
     Dosage: 1 DROP, 2 OR 3X/DAY; IN THE SECOND EYE
     Route: 047
     Dates: start: 202201, end: 202201
  5. OFLOXACIN [Suspect]
     Active Substance: OFLOXACIN
     Indication: Cataract operation
     Route: 065
  6. OFLOXACIN [Suspect]
     Active Substance: OFLOXACIN
     Indication: Cataract operation
     Route: 065
  7. PROLENSA [Suspect]
     Active Substance: BROMFENAC SODIUM
     Indication: Cataract operation
     Route: 065
  8. PROLENSA [Suspect]
     Active Substance: BROMFENAC SODIUM
     Indication: Cataract operation
     Route: 065

REACTIONS (3)
  - Nausea [Recovered/Resolved]
  - Dizziness [Recovered/Resolved]
  - Off label use [Recovered/Resolved]

NARRATIVE: CASE EVENT DATE: 20211201
